FAERS Safety Report 20949223 (Version 1)
Quarter: 2022Q2

REPORT INFORMATION
  Report Type: Spontaneous
  Country: US (occurrence: US)
  Receive Date: 20220613
  Receipt Date: 20220613
  Transmission Date: 20220721
  Serious: No
  Sender: FDA-Public Use
  Company Number: US-NOVARTISTESTPH-NVSC2022US134647

PATIENT
  Age: 42 Year
  Sex: Male

DRUGS (1)
  1. VOTRIENT [Suspect]
     Active Substance: PAZOPANIB HYDROCHLORIDE
     Indication: Renal cancer
     Dosage: 600 MG, QD
     Route: 048
     Dates: start: 20220412

REACTIONS (2)
  - Skin discolouration [Unknown]
  - Hair colour changes [Unknown]

NARRATIVE: CASE EVENT DATE: 20220412
